FAERS Safety Report 12688885 (Version 1)
Quarter: 2016Q3

REPORT INFORMATION
  Report Type: Spontaneous
  Country: US (occurrence: None)
  Receive Date: 20160825
  Receipt Date: 20160825
  Transmission Date: 20161109
  Serious: No
  Sender: FDA-Public Use
  Company Number: None

PATIENT

DRUGS (2)
  1. TYLENOL [Suspect]
     Active Substance: ACETAMINOPHEN
     Route: 054
  2. TYLENOL [Suspect]
     Active Substance: ACETAMINOPHEN
     Route: 054

REACTIONS (2)
  - Product label confusion [None]
  - Product packaging confusion [None]
